FAERS Safety Report 6576170-6 (Version None)
Quarter: 2010Q1

REPORT INFORMATION
  Report Type: 
  Country: None (occurrence: None)
  Receive Date: 20100209
  Receipt Date: 20100125
  Transmission Date: 20100710
  Serious: Yes (Hospitalization, Other)
  Sender: FDA-Public Use
  Company Number: PHHY2010GH06136

PATIENT
  Sex: Female
  Weight: 3.3 kg

DRUGS (1)
  1. METHERGINE [Suspect]
     Dosage: 1 ML, UNK
     Route: 030

REACTIONS (14)
  - APNOEA [None]
  - AREFLEXIA [None]
  - BLOOD PRESSURE DECREASED [None]
  - BLOOD SODIUM DECREASED [None]
  - CYANOSIS [None]
  - DRUG TOXICITY [None]
  - HEART RATE INCREASED [None]
  - HYPOVENTILATION [None]
  - HYPOXIA [None]
  - NEONATAL DISORDER [None]
  - RENAL IMPAIRMENT [None]
  - RESPIRATORY DEPRESSION [None]
  - RESPIRATORY DISTRESS [None]
  - WRONG DRUG ADMINISTERED [None]
